FAERS Safety Report 16067626 (Version 1)
Quarter: 2019Q2

REPORT INFORMATION
  Report Type: Spontaneous
  Country: US (occurrence: US)
  Receive Date: 20190313
  Receipt Date: 20190313
  Transmission Date: 20190711
  Serious: Yes (Hospitalization, Other)
  Sender: FDA-Public Use
  Company Number: None

PATIENT
  Age: 43 Year
  Sex: Female

DRUGS (9)
  1. SERTRALINE [Concomitant]
     Active Substance: SERTRALINE HYDROCHLORIDE
  2. OCREVUS [Suspect]
     Active Substance: OCRELIZUMAB
     Indication: MULTIPLE SCLEROSIS
     Dosage: ?          OTHER FREQUENCY:EVERY 6 MONTHS;?
     Route: 042
     Dates: start: 20170503
  3. LISINOPRIL TAB 5MG [Concomitant]
     Active Substance: LISINOPRIL
  4. VITAMIN D3 CAP 5000UNIT [Concomitant]
  5. LANTUS INJ 100/ML [Concomitant]
  6. LEVOTHYROXIN TAB 75MCG [Concomitant]
  7. LIOTHYRONINE TAB 5MCG [Concomitant]
  8. VESICARE TAB 5MG [Concomitant]
  9. NOVOLOG INJ 100/ML [Concomitant]

REACTIONS (1)
  - Neutropenia [None]

NARRATIVE: CASE EVENT DATE: 20181101
